FAERS Safety Report 4463639-3 (Version None)
Quarter: 2004Q3

REPORT INFORMATION
  Report Type: 
  Country: None (occurrence: None)
  Receive Date: 20040929
  Receipt Date: 20040915
  Transmission Date: 20050211
  Serious: Yes (Other)
  Sender: FDA-Public Use
  Company Number: FR_040904807

PATIENT
  Age: 73 Year
  Sex: Female

DRUGS (1)
  1. PROZAC [Suspect]
     Indication: DEPRESSION
     Dosage: 20 MG/1 DAY
     Dates: start: 19940101

REACTIONS (1)
  - INTERSTITIAL LUNG DISEASE [None]
